FAERS Safety Report 6239998-8 (Version None)
Quarter: 2009Q2

REPORT INFORMATION
  Report Type: 
  Country: None (occurrence: None)
  Receive Date: 20090623
  Receipt Date: 20090608
  Transmission Date: 20091009
  Serious: Yes (Hospitalization)
  Sender: FDA-Public Use
  Company Number: PHHY2009FR24642

PATIENT
  Sex: Male
  Weight: 85 kg

DRUGS (8)
  1. LOTENSIN HCT [Suspect]
     Indication: HYPERTENSION
     Dosage: 1 DF (10/12.5MG), QD
     Route: 048
     Dates: end: 20090429
  2. VOLTAREN [Concomitant]
     Dosage: 75 MG
     Route: 048
     Dates: end: 20090427
  3. VASTAREL [Concomitant]
     Indication: VERTIGO
     Dosage: 35 MG, BID
     Route: 048
  4. FLECAINIDE ACETATE [Concomitant]
     Indication: ARRHYTHMIA
     Dosage: 0.5 DF, BID
     Route: 048
  5. TEMESTA [Concomitant]
     Indication: ANXIETY
     Dosage: 1 MG, QD
     Route: 048
  6. SYMPATHYL [Concomitant]
     Dosage: 1 DF, BID
     Route: 048
     Dates: end: 20090428
  7. TANAKAN [Concomitant]
     Dosage: UNK
     Route: 048
     Dates: end: 20090429
  8. EFFERALGAN [Concomitant]
     Route: 048

REACTIONS (10)
  - ATRIOVENTRICULAR BLOCK SECOND DEGREE [None]
  - BACK PAIN [None]
  - BACTERIA URINE IDENTIFIED [None]
  - CHRONIC OBSTRUCTIVE PULMONARY DISEASE [None]
  - CONFUSIONAL STATE [None]
  - DISORIENTATION [None]
  - HEART RATE IRREGULAR [None]
  - HYPONATRAEMIA [None]
  - POLLAKIURIA [None]
  - PROSTATIC CALCIFICATION [None]
